FAERS Safety Report 5531588-5 (Version None)
Quarter: 2007Q4

REPORT INFORMATION
  Report Type: 
  Country: None (occurrence: None)
  Receive Date: 20071203
  Receipt Date: 20071123
  Transmission Date: 20080405
  Serious: Yes (Other)
  Sender: FDA-Public Use
  Company Number: PHNU2007DE03907

PATIENT
  Age: 7 Year
  Sex: Male

DRUGS (1)
  1. RITALIN [Suspect]
     Dosage: UP TO 50 MG/DAY
     Route: 048
     Dates: start: 20061001

REACTIONS (3)
  - DIABETES MELLITUS [None]
  - TREMOR [None]
  - VISION BLURRED [None]
